FAERS Safety Report 15058108 (Version 3)
Quarter: 2019Q1

REPORT INFORMATION
  Report Type: Spontaneous
  Country: US (occurrence: US)
  Receive Date: 20180625
  Receipt Date: 20190130
  Transmission Date: 20190417
  Serious: Yes (Hospitalization, Other)
  Sender: FDA-Public Use
  Company Number: US-PFIZER INC-2018254359

PATIENT
  Age: 8 Year
  Sex: Female
  Weight: 52.15 kg

DRUGS (1)
  1. ZOLOFT [Suspect]
     Active Substance: SERTRALINE HYDROCHLORIDE
     Indication: ABNORMAL BEHAVIOUR
     Dosage: UNK
     Dates: start: 2017

REACTIONS (11)
  - Confusional state [Not Recovered/Not Resolved]
  - Crying [Unknown]
  - Abnormal behaviour [Not Recovered/Not Resolved]
  - Nightmare [Not Recovered/Not Resolved]
  - Violence-related symptom [Unknown]
  - Tremor [Not Recovered/Not Resolved]
  - Night sweats [Not Recovered/Not Resolved]
  - Aggression [Unknown]
  - Muscle twitching [Not Recovered/Not Resolved]
  - Epistaxis [Not Recovered/Not Resolved]
  - Insomnia [Not Recovered/Not Resolved]

NARRATIVE: CASE EVENT DATE: 201708
